FAERS Safety Report 5387443-7 (Version None)
Quarter: 2007Q3

REPORT INFORMATION
  Report Type: 
  Country: None (occurrence: None)
  Receive Date: 20070716
  Receipt Date: 20070716
  Transmission Date: 20080115
  Serious: Yes (Life-Threatening, Hospitalization, Other)
  Sender: FDA-Public Use
  Company Number: None

PATIENT
  Age: 39 Year
  Sex: Female

DRUGS (7)
  1. CITALOPRAM HYDROBROMIDE [Suspect]
     Indication: DEPRESSION
  2. CITALOPRAM HYDROBROMIDE [Suspect]
     Indication: EMOTIONAL DISTRESS
  3. FLUVOXAMINE MALEATE [Concomitant]
  4. CLONAZEPAM [Concomitant]
  5. BUPROPION HCL [Concomitant]
  6. CLONAZEPAM [Concomitant]
  7. OLANZAPINE [Concomitant]

REACTIONS (5)
  - ABDOMINAL PAIN UPPER [None]
  - ALANINE AMINOTRANSFERASE INCREASED [None]
  - ASPARTATE AMINOTRANSFERASE INCREASED [None]
  - HEPATORENAL SYNDROME [None]
  - HEPATOTOXICITY [None]
